FAERS Safety Report 5534427-1 (Version None)
Quarter: 2007Q4

REPORT INFORMATION
  Report Type: 
  Country: None (occurrence: None)
  Receive Date: 20071205
  Receipt Date: 20071127
  Transmission Date: 20080405
  Serious: Yes (Other)
  Sender: FDA-Public Use
  Company Number: A0653958A

PATIENT
  Age: 34 Year
  Sex: Female

DRUGS (7)
  1. LAMOTRIGINE [Suspect]
     Indication: BIPOLAR DISORDER
     Route: 048
  2. LITHIUM CARBONATE [Concomitant]
     Dosage: 1350MG PER DAY
  3. TOPAMAX [Concomitant]
     Dosage: 300MG PER DAY
  4. ABILIFY [Concomitant]
     Dosage: 5MG PER DAY
  5. LORAZEPAM [Concomitant]
     Dosage: 2MG PER DAY
  6. FOLIC ACID [Concomitant]
  7. VITAMIN CAP [Concomitant]

REACTIONS (6)
  - DELIVERY [None]
  - POLYHYDRAMNIOS [None]
  - PREGNANCY INDUCED HYPERTENSION [None]
  - RETAINED PLACENTA OR MEMBRANES [None]
  - UMBILICAL CORD ABNORMALITY [None]
  - UTERINE INFECTION [None]
